FAERS Safety Report 17894488 (Version 1)
Quarter: 2020Q2

REPORT INFORMATION
  Report Type: Spontaneous
  Country: US (occurrence: US)
  Receive Date: 20200615
  Receipt Date: 20200615
  Transmission Date: 20200714
  Serious: Yes (Other)
  Sender: FDA-Public Use
  Company Number: US-ROCHE-2620218

PATIENT
  Sex: Male

DRUGS (4)
  1. VALIUM [Suspect]
     Active Substance: DIAZEPAM
     Indication: PRODUCT USED FOR UNKNOWN INDICATION
     Route: 065
  2. APTIOM [Suspect]
     Active Substance: ESLICARBAZEPINE ACETATE
     Dosage: 1 WEEK
     Route: 048
  3. APTIOM [Suspect]
     Active Substance: ESLICARBAZEPINE ACETATE
     Indication: MYOTONIA
     Dosage: ONGOING: YES
     Route: 048
     Dates: start: 20200518
  4. APTIOM [Suspect]
     Active Substance: ESLICARBAZEPINE ACETATE
     Route: 048
     Dates: end: 20200517

REACTIONS (6)
  - Suicidal ideation [Unknown]
  - Intentional product use issue [Unknown]
  - Coeliac disease [Not Recovered/Not Resolved]
  - Nausea [Unknown]
  - Prescribed underdose [Unknown]
  - Off label use [Unknown]
